FAERS Safety Report 13155681 (Version 1)
Quarter: 2017Q1

REPORT INFORMATION
  Report Type: Spontaneous
  Country: US (occurrence: US)
  Receive Date: 20170126
  Receipt Date: 20170126
  Transmission Date: 20170428
  Serious: No
  Sender: FDA-Public Use
  Company Number: US-ROCHE-1091757

PATIENT
  Sex: Female

DRUGS (2)
  1. VALIUM [Suspect]
     Active Substance: DIAZEPAM
     Indication: PRODUCT USED FOR UNKNOWN INDICATION
     Route: 065
  2. ASPIRIN. [Concomitant]
     Active Substance: ASPIRIN

REACTIONS (7)
  - Weight decreased [Unknown]
  - Fall [Unknown]
  - Cognitive disorder [Unknown]
  - Infection [Unknown]
  - Noninfective encephalitis [Unknown]
  - Hypersensitivity [Unknown]
  - Nervousness [Unknown]
